FAERS Safety Report 15792259 (Version 1)
Quarter: 2019Q1

REPORT INFORMATION
  Report Type: Spontaneous
  Country: US (occurrence: US)
  Receive Date: 20190107
  Receipt Date: 20190107
  Transmission Date: 20190417
  Serious: No
  Sender: FDA-Public Use
  Company Number: US-TRIS PHARMA, INC.-2018TRISPO01266

PATIENT

DRUGS (1)
  1. QUILLIVANT XR [Suspect]
     Active Substance: METHYLPHENIDATE HYDROCHLORIDE
     Dosage: UNKNOWN
     Route: 065

REACTIONS (4)
  - Disturbance in attention [Unknown]
  - Weight decreased [Unknown]
  - Decreased appetite [Unknown]
  - Drug effect incomplete [Unknown]
